FAERS Safety Report 7055389-4 (Version None)
Quarter: 2010Q4

REPORT INFORMATION
  Report Type: 
  Country: None (occurrence: None)
  Receive Date: 20101021
  Receipt Date: 20101012
  Transmission Date: 20110411
  Serious: Yes (Hospitalization)
  Sender: FDA-Public Use
  Company Number: DE-ABBOTT-10P-062-0678219-00

PATIENT
  Sex: Male
  Weight: 60 kg

DRUGS (2)
  1. KALETRA [Suspect]
     Indication: HIV INFECTION
     Dosage: 2 TIMES 2
     Route: 048
     Dates: start: 20100419
  2. ISENTRESS [Concomitant]
     Indication: HIV INFECTION
     Dosage: 2 TIMES 1
     Route: 048
     Dates: start: 20100419

REACTIONS (4)
  - DEPRESSION [None]
  - ENDOCERVICAL CURETTAGE [None]
  - IRON DEFICIENCY [None]
  - PHOBIA [None]
